FAERS Safety Report 5442667-5 (Version None)
Quarter: 2007Q3

REPORT INFORMATION
  Report Type: 
  Country: None (occurrence: None)
  Receive Date: 20070731
  Receipt Date: 20070614
  Transmission Date: 20080115
  Serious: No
  Sender: FDA-Public Use
  Company Number: US200706003555

PATIENT
  Age: 1 Year
  Sex: Female

DRUGS (5)
  1. BYETTA [Suspect]
     Indication: TYPE 2 DIABETES MELLITUS
     Dosage: 10 UG, 2/D
     Dates: start: 20070601
  2. EXENATIDE PEN, DISPOSABLE DEVICE (EXENATIDE PEN [Concomitant]
  3. GLUCOPHAGE [Concomitant]
  4. AVANDIA [Concomitant]
  5. ACTOS [Concomitant]

REACTIONS (1)
  - OEDEMA PERIPHERAL [None]
